FAERS Safety Report 7953322-1 (Version None)
Quarter: 2011Q4

REPORT INFORMATION
  Report Type: 
  Country: None (occurrence: None)
  Receive Date: 20111202
  Receipt Date: 20111129
  Transmission Date: 20120403
  Serious: Yes (Hospitalization)
  Sender: FDA-Public Use
  Company Number: DE-BIOGENIDEC-2011BI004625

PATIENT
  Age: 33 Year
  Sex: Female
  Weight: 53 kg

DRUGS (2)
  1. TYSABRI [Suspect]
     Indication: RELAPSING-REMITTING MULTIPLE SCLEROSIS
     Route: 042
     Dates: start: 20070919, end: 20110110
  2. TYSABRI [Suspect]
     Route: 042
     Dates: start: 20111013

REACTIONS (1)
  - POSTPARTUM DEPRESSION [None]
